FAERS Safety Report 6052610-6 (Version None)
Quarter: 2009Q1

REPORT INFORMATION
  Report Type: 
  Country: None (occurrence: None)
  Receive Date: 20090127
  Receipt Date: 20090116
  Transmission Date: 20090719
  Serious: Yes (Hospitalization)
  Sender: FDA-Public Use
  Company Number: US-RB-008756-09

PATIENT
  Age: 86 Year
  Sex: Female

DRUGS (2)
  1. MUCINEX DM [Suspect]
     Indication: RESPIRATORY TRACT CONGESTION
     Route: 048
     Dates: start: 20090107
  2. ANTIBIOTICS [Concomitant]

REACTIONS (1)
  - DRUG INEFFECTIVE [None]
